FAERS Safety Report 12203126 (Version 1)
Quarter: 2016Q1

REPORT INFORMATION
  Report Type: Spontaneous
  Country: US (occurrence: None)
  Receive Date: 20160321
  Receipt Date: 20160321
  Transmission Date: 20160526
  Serious: Yes (Hospitalization)
  Sender: FDA-Public Use
  Company Number: None

PATIENT
  Age: 74 Year
  Sex: Male
  Weight: 80.2 kg

DRUGS (2)
  1. LENALIDOMIDE (CC-5013) [Suspect]
     Active Substance: LENALIDOMIDE
     Dates: end: 20160309
  2. VELCADE [Suspect]
     Active Substance: BORTEZOMIB
     Dates: end: 20160127

REACTIONS (13)
  - Pyrexia [None]
  - Mental status changes [None]
  - Hypophagia [None]
  - Oxygen saturation decreased [None]
  - Pulmonary oedema [None]
  - Blood creatinine increased [None]
  - Blood potassium decreased [None]
  - Sepsis [None]
  - Dyspnoea [None]
  - Fluid intake reduced [None]
  - Blood glucose decreased [None]
  - Lung infiltration [None]
  - Lung infection [None]

NARRATIVE: CASE EVENT DATE: 20160311
